FAERS Safety Report 7505858-5 (Version None)
Quarter: 2011Q2

REPORT INFORMATION
  Report Type: 
  Country: None (occurrence: None)
  Receive Date: 20110526
  Receipt Date: 20110201
  Transmission Date: 20111010
  Serious: Yes (Other)
  Sender: FDA-Public Use
  Company Number: US-BAYER-201036323NA

PATIENT
  Age: 24 Year
  Sex: Female
  Weight: 129 kg

DRUGS (4)
  1. ELMIRON [Concomitant]
     Dosage: 100 MG, TID
     Route: 048
  2. YAZ [Suspect]
     Indication: PRODUCT USED FOR UNKNOWN INDICATION
     Dosage: UNK
     Route: 048
     Dates: start: 20080701, end: 20090101
  3. DARVON [Concomitant]
     Dosage: 100 MG, UNK
     Route: 048
     Dates: start: 20081106
  4. YAZ [Suspect]
     Dosage: UNK
     Dates: start: 20080801, end: 20090101

REACTIONS (3)
  - CHOLECYSTITIS [None]
  - GALLBLADDER DISORDER [None]
  - CHOLELITHIASIS [None]
